FAERS Safety Report 4491980-7 (Version None)
Quarter: 2004Q4

REPORT INFORMATION
  Report Type: 
  Country: None (occurrence: None)
  Receive Date: 20041029
  Receipt Date: 20041029
  Transmission Date: 20050328
  Serious: Yes (Other)
  Sender: FDA-Public Use
  Company Number: None

PATIENT
  Age: 50 Year
  Sex: Female

DRUGS (1)
  1. REMICADE [Suspect]

REACTIONS (5)
  - ABDOMINAL PAIN [None]
  - ANXIETY [None]
  - DYSPNOEA [None]
  - NAUSEA [None]
  - VOMITING [None]
